FAERS Safety Report 11981919 (Version 1)
Quarter: 2016Q1

REPORT INFORMATION
  Report Type: Spontaneous
  Country: IN (occurrence: IN)
  Receive Date: 20160201
  Receipt Date: 20160201
  Transmission Date: 20160526
  Serious: Yes (Hospitalization, Other)
  Sender: FDA-Public Use
  Company Number: IN-ALEMBIC PHARMACUETICALS LIMITED-2016SCAL000065

PATIENT
  Age: 45 Year
  Sex: Male

DRUGS (2)
  1. METRONIDAZOLE. [Suspect]
     Active Substance: METRONIDAZOLE
     Dosage: 800 MG, TID FOR 3 WEEKS
     Route: 048
  2. METRONIDAZOLE. [Suspect]
     Active Substance: METRONIDAZOLE
     Indication: LIVER ABSCESS
     Dosage: 800 ML, TID FOR 5 DAYS
     Route: 042

REACTIONS (8)
  - Eye movement disorder [Recovering/Resolving]
  - Cerebellar syndrome [Recovering/Resolving]
  - Speech disorder [Fatal]
  - Romberg test positive [Recovering/Resolving]
  - Vertigo [Recovering/Resolving]
  - Neurotoxicity [Recovering/Resolving]
  - Dysarthria [Recovering/Resolving]
  - Ataxia [Recovering/Resolving]
